FAERS Safety Report 4582394-X (Version None)
Quarter: 2005Q1

REPORT INFORMATION
  Report Type: 
  Country: None (occurrence: None)
  Receive Date: 20050119
  Receipt Date: 20040421
  Transmission Date: 20050727
  Serious: Yes (Death)
  Sender: FDA-Public Use
  Company Number: US-JNJFOC-20040305040

PATIENT
  Age: 74 Year
  Sex: Female
  Weight: 58.0604 kg

DRUGS (2)
  1. DOXIL [Suspect]
     Indication: OVARIAN CANCER
     Dosage: 50 MG; 25 MG  : INTRAVENOUS
     Route: 042
     Dates: start: 20031121, end: 20031121
  2. DOXIL [Suspect]
     Indication: OVARIAN CANCER
     Dosage: 50 MG; 25 MG  : INTRAVENOUS
     Route: 042
     Dates: start: 20031217, end: 20031217

REACTIONS (1)
  - OVARIAN CANCER [None]
